FAERS Safety Report 6547881-3 (Version None)
Quarter: 2010Q1

REPORT INFORMATION
  Report Type: 
  Country: None (occurrence: None)
  Receive Date: 20100124
  Receipt Date: 20091111
  Transmission Date: 20100710
  Serious: No
  Sender: FDA-Public Use
  Company Number: US-ALEXION-A200900956

PATIENT
  Sex: Female

DRUGS (6)
  1. SOLIRIS [Suspect]
     Indication: PAROXYSMAL NOCTURNAL HAEMOGLOBINURIA
     Dosage: 600 MG, QW
     Route: 042
     Dates: start: 20070516, end: 20070601
  2. SOLIRIS [Suspect]
     Dosage: 900 MG, Q2W
     Route: 042
     Dates: start: 20070613
  3. COUMADIN [Concomitant]
     Dosage: 7.5 MG, QD
     Route: 048
  4. PREDNISONE [Concomitant]
     Dosage: 20 MG, QD
     Route: 048
  5. FOLIC ACID [Concomitant]
     Dosage: 800 UG, QD
     Route: 048
  6. POTASSIUM [Concomitant]
     Dosage: UNK
     Route: 048

REACTIONS (1)
  - MENORRHAGIA [None]
